FAERS Safety Report 11555926 (Version 3)
Quarter: 2015Q4

REPORT INFORMATION
  Report Type: Spontaneous
  Country: DE (occurrence: DE)
  Receive Date: 20150925
  Receipt Date: 20151009
  Transmission Date: 20160304
  Serious: Yes (Other)
  Sender: FDA-Public Use
  Company Number: DE-ABBVIE-15P-062-1470403-00

PATIENT
  Age: 75 Year
  Sex: Male

DRUGS (1)
  1. VALPROIC ACID. [Suspect]
     Active Substance: VALPROIC ACID
     Indication: EPILEPSY
     Route: 065

REACTIONS (6)
  - Inappropriate antidiuretic hormone secretion [Recovering/Resolving]
  - Balance disorder [Unknown]
  - Hyponatraemia [Recovered/Resolved]
  - Asthenia [Unknown]
  - Disorientation [Unknown]
  - Personality change [Unknown]
